FAERS Safety Report 9793044 (Version 1)
Quarter: 2014Q1

REPORT INFORMATION
  Report Type: Spontaneous
  Country: GB (occurrence: GB)
  Receive Date: 20140102
  Receipt Date: 20140102
  Transmission Date: 20141002
  Serious: Yes (Hospitalization)
  Sender: FDA-Public Use
  Company Number: GB-TEVA-453783ISR

PATIENT
  Age: 82 Year
  Sex: Male
  Weight: 68 kg

DRUGS (12)
  1. AMIODARONE [Suspect]
     Indication: ATRIAL FIBRILLATION
     Dosage: 100 MILLIGRAM DAILY;
     Route: 048
     Dates: end: 20131122
  2. ATORVASTATIN [Concomitant]
     Dosage: 40 MILLIGRAM DAILY;
  3. FINASTERIDE [Concomitant]
     Dosage: 5 MILLIGRAM DAILY;
  4. FLUCLOXACILLIN [Concomitant]
     Dosage: 2000 MILLIGRAM DAILY;
  5. FLUDROCORTISONE [Concomitant]
     Dosage: 200 MICROGRAM DAILY;
  6. FLUDROCORTISONE [Concomitant]
  7. FOLIC ACID [Concomitant]
     Dosage: 5 MILLIGRAM DAILY;
  8. LANSOPRAZOLE [Concomitant]
     Dosage: 30 MILLIGRAM DAILY;
  9. MEMANTINE [Concomitant]
     Dosage: 20 MILLIGRAM DAILY;
  10. MIRTAZAPINE [Concomitant]
     Dosage: 15 MILLIGRAM DAILY;
  11. PREDNISOLONE [Concomitant]
     Dosage: 5 MILLIGRAM DAILY;
  12. TRIMETHOPRIM [Concomitant]
     Dosage: 200 MILLIGRAM DAILY;

REACTIONS (1)
  - Thyroiditis [Recovering/Resolving]
